FAERS Safety Report 4861581-7 (Version None)
Quarter: 2005Q4

REPORT INFORMATION
  Report Type: 
  Country: None (occurrence: None)
  Receive Date: 20051220
  Receipt Date: 20051209
  Transmission Date: 20060501
  Serious: Yes (Other)
  Sender: FDA-Public Use
  Company Number: AT-BRISTOL-MYERS SQUIBB COMPANY-13211644

PATIENT
  Age: 73 Year
  Sex: Female
  Weight: 90 kg

DRUGS (1)
  1. MAXIPIME [Suspect]
     Indication: HEAD INJURY
     Dates: start: 20050107, end: 20050116

REACTIONS (1)
  - LIVER DISORDER [None]
